FAERS Safety Report 20842696 (Version 2)
Quarter: 2022Q4

REPORT INFORMATION
  Report Type: Spontaneous
  Country: US (occurrence: US)
  Receive Date: 20220518
  Receipt Date: 20221110
  Transmission Date: 20230112
  Serious: No
  Sender: FDA-Public Use
  Company Number: US-NOVARTISTESTPH-NVSC2022US114082

PATIENT
  Sex: Female

DRUGS (2)
  1. VOTRIENT [Suspect]
     Active Substance: PAZOPANIB HYDROCHLORIDE
     Indication: Uterine cancer
     Dosage: 600 MG, QD
     Route: 048
     Dates: start: 20220519
  2. VOTRIENT [Suspect]
     Active Substance: PAZOPANIB HYDROCHLORIDE
     Indication: Metastases to retroperitoneum

REACTIONS (10)
  - Ageusia [Unknown]
  - Thyroid disorder [Unknown]
  - Oral pain [Unknown]
  - Contusion [Unknown]
  - Diarrhoea [Unknown]
  - Alopecia [Unknown]
  - Nausea [Unknown]
  - Abdominal pain [Unknown]
  - Flatulence [Unknown]
  - Product use in unapproved indication [Unknown]
